FAERS Safety Report 14376056 (Version 1)
Quarter: 2018Q1

REPORT INFORMATION
  Report Type: Spontaneous
  Country: US (occurrence: US)
  Receive Date: 20180110
  Receipt Date: 20180110
  Transmission Date: 20180509
  Serious: Yes (Hospitalization)
  Sender: FDA-Public Use
  Company Number: None

PATIENT
  Age: 70 Year
  Sex: Male
  Weight: 101 kg

DRUGS (2)
  1. AMPICILLIN [Suspect]
     Active Substance: AMPICILLIN
     Indication: ENTEROCOCCAL INFECTION
     Dosage: 12G DAILY IV CONTINUOUS INFUSION
     Route: 042
     Dates: start: 20171215, end: 20171221
  2. AMPICILLIN [Suspect]
     Active Substance: AMPICILLIN
     Indication: ARTHRITIS INFECTIVE
     Dosage: 12G DAILY IV CONTINUOUS INFUSION
     Route: 042
     Dates: start: 20171215, end: 20171221

REACTIONS (1)
  - Acute kidney injury [None]

NARRATIVE: CASE EVENT DATE: 20171221
